FAERS Safety Report 12347100 (Version 3)
Quarter: 2016Q2

REPORT INFORMATION
  Report Type: Report from Study
  Country: DE (occurrence: DE)
  Receive Date: 20160509
  Receipt Date: 20160629
  Transmission Date: 20160815
  Serious: Yes (Other)
  Sender: FDA-Public Use
  Company Number: DE-ABBVIE-16P-062-1620582-00

PATIENT
  Age: 61 Year
  Sex: Male
  Weight: 125 kg

DRUGS (7)
  1. DUODOPA [Suspect]
     Active Substance: CARBIDOPA\LEVODOPA
     Dosage: 2.9 ML/H
     Route: 050
     Dates: start: 20160317, end: 20160318
  2. DUODOPA [Suspect]
     Active Substance: CARBIDOPA\LEVODOPA
     Dosage: 2.9 ML/H
     Route: 050
     Dates: start: 20160318
  3. DUODOPA [Suspect]
     Active Substance: CARBIDOPA\LEVODOPA
     Dosage: 2.6 ML/H
     Route: 050
     Dates: start: 20160222, end: 20160504
  4. DUODOPA [Suspect]
     Active Substance: CARBIDOPA\LEVODOPA
     Indication: PARKINSON^S DISEASE
     Dosage: 3.1 ML/H
     Route: 050
     Dates: start: 20160226
  5. TASMAR [Concomitant]
     Active Substance: TOLCAPONE
     Indication: PRODUCT USED FOR UNKNOWN INDICATION
     Route: 065
  6. DUODOPA [Suspect]
     Active Substance: CARBIDOPA\LEVODOPA
     Dosage: 3.3 ML/H
     Route: 050
     Dates: start: 20160504
  7. DUODOPA [Suspect]
     Active Substance: CARBIDOPA\LEVODOPA
     Dosage: 7 ML/3 H
     Route: 050
     Dates: start: 20160620

REACTIONS (8)
  - Hallucination, visual [Recovered/Resolved]
  - Mobility decreased [Recovered/Resolved]
  - On and off phenomenon [Recovered/Resolved]
  - Drug ineffective [Recovered/Resolved]
  - Mobility decreased [Not Recovered/Not Resolved]
  - Freezing phenomenon [Recovered/Resolved]
  - Drug ineffective [Recovered/Resolved]
  - Device dislocation [Recovered/Resolved]

NARRATIVE: CASE EVENT DATE: 2016
